FAERS Safety Report 8967146 (Version 1)
Quarter: 2012Q4

REPORT INFORMATION
  Report Type: 
  Country: US (occurrence: US)
  Receive Date: 20121217
  Receipt Date: 20121217
  Transmission Date: 20130627
  Serious: Yes (Hospitalization)
  Sender: FDA-Public Use
  Company Number: PHEH2012US024563

PATIENT

DRUGS (1)
  1. EXELON PATCH [Suspect]
     Dosage: 9.5 mg/10 cm2, daily
     Route: 062

REACTIONS (5)
  - Cardiac disorder [Unknown]
  - Gastric disorder [Unknown]
  - Heart rate decreased [Unknown]
  - Heart rate irregular [Unknown]
  - Decreased appetite [Unknown]
